FAERS Safety Report 25792508 (Version 2)
Quarter: 2025Q3

REPORT INFORMATION
  Report Type: Spontaneous
  Country: US (occurrence: US)
  Receive Date: 20250911
  Receipt Date: 20250924
  Transmission Date: 20251021
  Serious: Yes (Death, Hospitalization, Other)
  Sender: TEVA
  Company Number: US-TEVA-VS-3368440

PATIENT
  Sex: Male

DRUGS (4)
  1. CARVEDILOL [Suspect]
     Active Substance: CARVEDILOL
     Indication: Myopericarditis
     Dosage: INGESTED 12-15 IMMEDIATE-RELEASE TABLETS
     Route: 048
  2. COLCHICINE [Suspect]
     Active Substance: COLCHICINE
     Indication: Myopericarditis
     Dosage: INGESTED APPROXIMATELY 30 PILLS OF COLCHICINE 0.5 MG, WHICH WAS 15 MG TOTAL
     Route: 048
  3. METHAMPHETAMINE [Suspect]
     Active Substance: METHAMPHETAMINE
     Indication: Product used for unknown indication
     Route: 065
  4. COCAINE [Suspect]
     Active Substance: COCAINE
     Indication: Product used for unknown indication
     Route: 065

REACTIONS (15)
  - Multiple organ dysfunction syndrome [Fatal]
  - Cyanosis [Fatal]
  - Bradycardia [Fatal]
  - Drug abuse [Fatal]
  - Toxicity to various agents [Fatal]
  - Cardiogenic shock [Fatal]
  - Overdose [Fatal]
  - Cardiac dysfunction [Fatal]
  - Mental disorder [Fatal]
  - Pulmonary oedema [Fatal]
  - Leukocytosis [Unknown]
  - Nausea [Unknown]
  - Vomiting [Unknown]
  - Diarrhoea [Unknown]
  - Myopericarditis [Unknown]
